FAERS Safety Report 8415464-6 (Version None)
Quarter: 2012Q2

REPORT INFORMATION
  Report Type: 
  Country: None (occurrence: None)
  Receive Date: 20120606
  Receipt Date: 20120601
  Transmission Date: 20120825
  Serious: Yes (Death)
  Sender: FDA-Public Use
  Company Number: PHHY2010TR75227

PATIENT
  Sex: Female

DRUGS (3)
  1. STALEVO 100 [Concomitant]
     Indication: PARKINSON'S DISEASE
     Dosage: 100 MG, 1 X 1
  2. EXELON [Suspect]
     Indication: DEMENTIA ALZHEIMER'S TYPE
     Dosage: 9.5 MG, UNK
     Route: 062
     Dates: start: 20100428
  3. AZILECT [Concomitant]
     Indication: PARKINSON'S DISEASE
     Dosage: FREQUENCY:1 X 1

REACTIONS (1)
  - DEATH [None]
